FAERS Safety Report 6252068-8 (Version None)
Quarter: 2009Q2

REPORT INFORMATION
  Report Type: 
  Country: None (occurrence: None)
  Receive Date: 20090630
  Receipt Date: 20041121
  Transmission Date: 20091009
  Serious: Yes (Hospitalization)
  Sender: FDA-Public Use
  Company Number: US-ROCHE-638752

PATIENT
  Sex: Male

DRUGS (8)
  1. ENFUVIRTIDE [Suspect]
     Indication: HIV INFECTION
     Route: 065
     Dates: start: 20040915, end: 20060816
  2. ENFUVIRTIDE [Suspect]
     Route: 065
     Dates: start: 20060905, end: 20080304
  3. APTIVUS [Concomitant]
     Dates: start: 20040915, end: 20060816
  4. NORVIR [Concomitant]
     Dates: start: 20040915, end: 20060816
  5. VIDEX [Concomitant]
     Dates: start: 20040915, end: 20060816
  6. VIREAD [Concomitant]
     Dates: start: 20040915, end: 20060816
  7. BACTRIM [Concomitant]
     Dates: start: 20020806, end: 20080814
  8. FLUCONAZOLE [Concomitant]
     Dates: start: 20041121, end: 20041124

REACTIONS (5)
  - ACQUIRED IMMUNODEFICIENCY SYNDROME [None]
  - CORONARY ARTERY DISEASE [None]
  - HYPOCHOLESTEROLAEMIA [None]
  - OESOPHAGEAL CANDIDIASIS [None]
  - TYPE 2 DIABETES MELLITUS [None]
